FAERS Safety Report 15702707 (Version 1)
Quarter: 2018Q4

REPORT INFORMATION
  Report Type: Spontaneous
  Country: US (occurrence: US)
  Receive Date: 20181127
  Receipt Date: 20181127
  Transmission Date: 20190205
  Serious: No
  Sender: FDA-Public Use
  Company Number: None

PATIENT
  Age: 53 Year
  Sex: Male

DRUGS (1)
  1. ENBREL [Suspect]
     Active Substance: ETANERCEPT
     Indication: PSORIASIS
     Dates: start: 201407

REACTIONS (3)
  - Product dispensing issue [None]
  - Therapy cessation [None]
  - Intercepted product administration error [None]

NARRATIVE: CASE EVENT DATE: 20181023
